FAERS Safety Report 5774145-8 (Version None)
Quarter: 2008Q2

REPORT INFORMATION
  Report Type: 
  Country: None (occurrence: None)
  Receive Date: 20080616
  Receipt Date: 20080606
  Transmission Date: 20081010
  Serious: Yes (Life-Threatening, Hospitalization, Other)
  Sender: FDA-Public Use
  Company Number: US-BRISTOL-MYERS SQUIBB COMPANY-14157366

PATIENT
  Age: 50 Year
  Sex: Female

DRUGS (6)
  1. ORENCIA [Suspect]
     Indication: RHEUMATOID ARTHRITIS
     Route: 042
     Dates: start: 20060809, end: 20070301
  2. PLAQUENIL [Concomitant]
  3. FLEXERIL [Concomitant]
  4. LORTAB [Concomitant]
  5. PREDNISONE TAB [Concomitant]
  6. IBUROFEN [Concomitant]

REACTIONS (1)
  - ACUTE RESPIRATORY DISTRESS SYNDROME [None]
